FAERS Safety Report 25492321 (Version 1)
Quarter: 2025Q2

REPORT INFORMATION
  Report Type: Report from Study
  Country: ES (occurrence: ES)
  Receive Date: 20250630
  Receipt Date: 20250630
  Transmission Date: 20250716
  Serious: Yes (Other)
  Sender: ROCHE
  Company Number: ES-ROCHE-10000319199

PATIENT
  Sex: Female

DRUGS (3)
  1. INAVOLISIB [Suspect]
     Active Substance: INAVOLISIB
     Indication: Product used for unknown indication
     Route: 065
  2. FULVESTRANT [Suspect]
     Active Substance: FULVESTRANT
     Indication: Product used for unknown indication
     Route: 065
  3. PALBOCICLIB [Suspect]
     Active Substance: PALBOCICLIB
     Indication: Product used for unknown indication
     Route: 065

REACTIONS (3)
  - Haematotoxicity [Unknown]
  - Asthenia [Unknown]
  - Hyperglycaemia [Unknown]
